FAERS Safety Report 9473423 (Version 2)
Quarter: 2013Q3

REPORT INFORMATION
  Report Type: Spontaneous
  Country: US (occurrence: US)
  Receive Date: 20130823
  Receipt Date: 20130823
  Transmission Date: 20140515
  Serious: Yes (Hospitalization)
  Sender: FDA-Public Use
  Company Number: US-BRISTOL-MYERS SQUIBB COMPANY-18966341

PATIENT
  Age: 68 Year
  Sex: Female
  Weight: 102.04 kg

DRUGS (11)
  1. SPRYCEL [Suspect]
     Indication: CHRONIC MYELOID LEUKAEMIA
     Dosage: STOP DATE 1 WK LATER
     Dates: start: 201303
  2. ALBUTEROL [Concomitant]
  3. AMLODIPINE [Concomitant]
  4. ATORVASTATIN [Concomitant]
  5. HYDROCODONE [Concomitant]
  6. IPRATROPIUM [Concomitant]
  7. LORAZEPAM [Concomitant]
  8. METOPROLOL [Concomitant]
  9. TAGAMET [Concomitant]
  10. TRILIPIX [Concomitant]
  11. VALSARTAN [Concomitant]

REACTIONS (3)
  - Pneumonia [Unknown]
  - Sinusitis [Unknown]
  - Vomiting [Unknown]
